FAERS Safety Report 6153041-0 (Version None)
Quarter: 2009Q2

REPORT INFORMATION
  Report Type: 
  Country: None (occurrence: None)
  Receive Date: 20090413
  Receipt Date: 20090407
  Transmission Date: 20091009
  Serious: No
  Sender: FDA-Public Use
  Company Number: US-B.I. PHARMACEUTICALS,INC./RIDGEFIELD-2009-BP-04340BP

PATIENT
  Sex: Female

DRUGS (9)
  1. SPIRIVA [Suspect]
     Indication: MULTIPLE ALLERGIES
     Dosage: 18MCG
     Route: 055
     Dates: start: 20070101
  2. SINGULAIR [Concomitant]
     Indication: HYPERSENSITIVITY
  3. VYTORIN [Concomitant]
     Indication: BLOOD CHOLESTEROL INCREASED
  4. MAXZIDE [Concomitant]
     Indication: HYPERTENSION
  5. MIRALAX [Concomitant]
     Indication: CONSTIPATION
  6. STOOL SOFTENERS [Concomitant]
     Indication: CONSTIPATION
  7. MUCINEX [Concomitant]
     Indication: HYPERSENSITIVITY
  8. ZYRTEC [Concomitant]
     Indication: HYPERSENSITIVITY
  9. VIVELLE [Concomitant]
     Indication: HORMONE REPLACEMENT THERAPY
     Dates: start: 19890101

REACTIONS (2)
  - OPEN ANGLE GLAUCOMA [None]
  - SYSTEMIC LUPUS ERYTHEMATOSUS [None]
